FAERS Safety Report 12446303 (Version 1)
Quarter: 2016Q2

REPORT INFORMATION
  Report Type: Report from Study
  Country: US (occurrence: US)
  Receive Date: 20160608
  Receipt Date: 20160608
  Transmission Date: 20160815
  Serious: Yes (Other)
  Sender: FDA-Public Use
  Company Number: US-ROCHE-1468507

PATIENT
  Age: 9 Year
  Sex: Male
  Weight: 28.5 kg

DRUGS (8)
  1. NUTROPIN AQ [Suspect]
     Active Substance: SOMATROPIN
     Indication: HYPOTHALAMO-PITUITARY DISORDER
     Dosage: NIGHTLY
     Route: 058
     Dates: start: 20131027
  2. NASONEX [Concomitant]
     Active Substance: MOMETASONE FUROATE
  3. NUTROPIN AQ [Suspect]
     Active Substance: SOMATROPIN
     Indication: HYPOCHONDROPLASIA
     Dosage: NIGHTLY
     Route: 058
     Dates: start: 20131027
  4. NUTROPIN AQ [Suspect]
     Active Substance: SOMATROPIN
     Route: 058
  5. ZYRTEC [Concomitant]
     Active Substance: CETIRIZINE HYDROCHLORIDE
  6. NUTROPIN AQ [Suspect]
     Active Substance: SOMATROPIN
     Route: 058
     Dates: start: 20061013
  7. NUTROPIN AQ [Suspect]
     Active Substance: SOMATROPIN
     Route: 058
  8. MIDAZOLAM HYDROCHLORIDE. [Suspect]
     Active Substance: MIDAZOLAM HYDROCHLORIDE
     Indication: PRODUCT USED FOR UNKNOWN INDICATION
     Route: 065

REACTIONS (15)
  - Back pain [Unknown]
  - Gastroenteritis viral [Unknown]
  - Deafness [Not Recovered/Not Resolved]
  - Insulin-like growth factor increased [Unknown]
  - Growth retardation [Unknown]
  - Pain in extremity [Unknown]
  - Ocular hyperaemia [Not Recovered/Not Resolved]
  - Seizure [Unknown]
  - Arthralgia [Unknown]
  - Contusion [Unknown]
  - Erythema [Not Recovered/Not Resolved]
  - Pterygium [Not Recovered/Not Resolved]
  - Headache [Unknown]
  - Dizziness [Unknown]
  - Limb deformity [Unknown]

NARRATIVE: CASE EVENT DATE: 20131027
